FAERS Safety Report 12170907 (Version 1)
Quarter: 2016Q1

REPORT INFORMATION
  Report Type: Spontaneous
  Country: IT (occurrence: IT)
  Receive Date: 20160311
  Receipt Date: 20160311
  Transmission Date: 20160526
  Serious: Yes (Other)
  Sender: FDA-Public Use
  Company Number: IT-TEVA-641183ACC

PATIENT
  Age: 73 Year
  Sex: Female

DRUGS (1)
  1. DONEPEZIL TEVA - 5 MG COMPRESSE RIVESTITE CON FILM - TEVA ITALIA S.R.L [Suspect]
     Active Substance: DONEPEZIL HYDROCHLORIDE
     Indication: DEMENTIA ALZHEIMER^S TYPE
     Route: 048
     Dates: start: 20130131, end: 20140530

REACTIONS (2)
  - Infarction [Unknown]
  - Therapeutic response decreased [Unknown]

NARRATIVE: CASE EVENT DATE: 20140131
